FAERS Safety Report 19403397 (Version 1)
Quarter: 2021Q2

REPORT INFORMATION
  Report Type: Spontaneous
  Country: US (occurrence: US)
  Receive Date: 20210610
  Receipt Date: 20210610
  Transmission Date: 20210717
  Serious: No
  Sender: FDA-Public Use
  Company Number: None

PATIENT
  Age: 42 Year
  Sex: Male
  Weight: 110.7 kg

DRUGS (1)
  1. PERFLUTREN LIPID MICROSPHERES [Suspect]
     Active Substance: PERFLUTREN
     Indication: DIAGNOSTIC PROCEDURE
     Route: 040
     Dates: start: 20210604, end: 20210604

REACTIONS (3)
  - Back pain [None]
  - Chest pain [None]
  - Muscle spasms [None]

NARRATIVE: CASE EVENT DATE: 20210604
